FAERS Safety Report 7116115-3 (Version None)
Quarter: 2010Q4

REPORT INFORMATION
  Report Type: 
  Country: None (occurrence: None)
  Receive Date: 20101122
  Receipt Date: 20101108
  Transmission Date: 20110411
  Serious: Yes (Hospitalization, Other)
  Sender: FDA-Public Use
  Company Number: PHHY2009DE15382

PATIENT
  Sex: Male
  Weight: 70 kg

DRUGS (2)
  1. LDT600 LDT+ [Suspect]
     Indication: HEPATITIS B
     Dosage: 600 MG/D
     Route: 048
     Dates: start: 20080715
  2. OMEPRAZOLE [Concomitant]
     Dosage: 20 MG, UNK
     Route: 048

REACTIONS (19)
  - ABDOMINAL ADHESIONS [None]
  - ABDOMINAL PAIN [None]
  - ABDOMINAL RIGIDITY [None]
  - APPENDICECTOMY [None]
  - APPENDICITIS [None]
  - ASPARTATE AMINOTRANSFERASE INCREASED [None]
  - BACK PAIN [None]
  - BLOOD CREATINE PHOSPHOKINASE INCREASED [None]
  - C-REACTIVE PROTEIN INCREASED [None]
  - CONSTIPATION [None]
  - DIARRHOEA [None]
  - GENERAL PHYSICAL HEALTH DETERIORATION [None]
  - HEPATITIS B DNA INCREASED [None]
  - INFLAMMATION [None]
  - LEUKOPENIA [None]
  - PAIN [None]
  - PYREXIA [None]
  - SALMONELLOSIS [None]
  - TREATMENT NONCOMPLIANCE [None]
